FAERS Safety Report 5922018-X (Version None)
Quarter: 2008Q4

REPORT INFORMATION
  Report Type: 
  Country: None (occurrence: None)
  Receive Date: 20081017
  Receipt Date: 20081008
  Transmission Date: 20090506
  Serious: Yes (Hospitalization)
  Sender: FDA-Public Use
  Company Number: A0751847A

PATIENT
  Age: 80 Year
  Sex: Female
  Weight: 57.9 kg

DRUGS (2)
  1. LAPATINIB [Suspect]
     Dosage: 1250MG PER DAY
     Route: 048
     Dates: start: 20080919
  2. CAPECITABINE [Suspect]
     Dosage: 1500MG TWICE PER DAY
     Route: 048
     Dates: start: 20080919

REACTIONS (4)
  - DIARRHOEA [None]
  - FALL [None]
  - SOMNOLENCE [None]
  - VOMITING [None]
